FAERS Safety Report 10762400 (Version 3)
Quarter: 2015Q3

REPORT INFORMATION
  Report Type: Spontaneous
  Country: JP (occurrence: JP)
  Receive Date: 20150204
  Receipt Date: 20150710
  Transmission Date: 20151125
  Serious: Yes (Hospitalization, Other)
  Sender: FDA-Public Use
  Company Number: JP-GILEAD-2014-0129154

PATIENT
  Age: 64 Year
  Sex: Female

DRUGS (6)
  1. ARTIST [Concomitant]
     Active Substance: CARVEDILOL
     Indication: VARICES OESOPHAGEAL
     Dosage: 5 MG, QD
     Dates: end: 20140707
  2. PORTOLAC [Concomitant]
     Active Substance: LACTITOL
     Indication: HEPATIC CIRRHOSIS
     Dosage: 6 G, TID
     Route: 065
  3. HEPSERA [Suspect]
     Active Substance: ADEFOVIR DIPIVOXIL
     Indication: CHRONIC HEPATITIS B
     Dosage: 10 MG, QD
     Route: 048
     Dates: start: 20040216, end: 20140707
  4. ZEFIX [Concomitant]
     Active Substance: LAMIVUDINE
     Indication: CHRONIC HEPATITIS B
     Dosage: 100 MG, QD
     Route: 065
     Dates: start: 2004, end: 20140707
  5. AMINOVACT [Concomitant]
     Indication: HEPATIC CIRRHOSIS
     Dosage: 1 DF, TID
  6. HEPSERA [Suspect]
     Active Substance: ADEFOVIR DIPIVOXIL
     Dosage: 10 MG, QD
     Route: 048
     Dates: start: 20040216, end: 20140707

REACTIONS (14)
  - Femoral neck fracture [Recovered/Resolved]
  - Osteomalacia [Unknown]
  - Fanconi syndrome acquired [Recovered/Resolved]
  - Gait disturbance [Unknown]
  - Duodenal ulcer [Unknown]
  - Renal impairment [Recovering/Resolving]
  - Abdominal pain upper [Unknown]
  - Gastric ulcer [Unknown]
  - Renal tubular disorder [Recovering/Resolving]
  - Fall [Unknown]
  - Arthralgia [Unknown]
  - Gait disturbance [Unknown]
  - Sciatica [Unknown]
  - Beta 2 microglobulin urine increased [Not Recovered/Not Resolved]

NARRATIVE: CASE EVENT DATE: 2013
